FAERS Safety Report 6404777-5 (Version None)
Quarter: 2009Q4

REPORT INFORMATION
  Report Type: 
  Country: None (occurrence: None)
  Receive Date: 20091016
  Receipt Date: 20091005
  Transmission Date: 20100525
  Serious: Yes (Hospitalization)
  Sender: FDA-Public Use
  Company Number: PHHY2009MX43007

PATIENT
  Sex: Female

DRUGS (3)
  1. DIOVAN HCT [Suspect]
     Indication: HYPERTENSION
     Dosage: 160/25MG PER DAY
  2. LOPRESSOR [Concomitant]
  3. BI-EUGLUCON [Concomitant]
     Indication: DIABETES MELLITUS

REACTIONS (2)
  - CATARACT [None]
  - CATARACT OPERATION [None]
